FAERS Safety Report 8221504-X (Version None)
Quarter: 2012Q1

REPORT INFORMATION
  Report Type: 
  Country: None (occurrence: None)
  Receive Date: 20120307
  Receipt Date: 20110516
  Transmission Date: 20120608
  Serious: No
  Sender: FDA-Public Use
  Company Number: PHHY2011US42449

PATIENT
  Age: 74 Year
  Sex: Male

DRUGS (1)
  1. AFINITOR [Suspect]
     Dosage: 10 MG, QD, ORAL
     Route: 048

REACTIONS (5)
  - DYSPHAGIA [None]
  - RHINORRHOEA [None]
  - FATIGUE [None]
  - DIARRHOEA [None]
  - APHAGIA [None]
